FAERS Safety Report 14666362 (Version 1)
Quarter: 2018Q1

REPORT INFORMATION
  Report Type: Spontaneous
  Country: US (occurrence: US)
  Receive Date: 20180321
  Receipt Date: 20180321
  Transmission Date: 20180509
  Serious: Yes (Hospitalization, Other)
  Sender: FDA-Public Use
  Company Number: US-ELI_LILLY_AND_COMPANY-US201803006228

PATIENT
  Age: 75 Year
  Sex: Female

DRUGS (2)
  1. HUMULIN 70/30 [Suspect]
     Active Substance: INSULIN HUMAN
     Indication: TYPE 2 DIABETES MELLITUS
     Dosage: 12 MG, UNKNOWN
     Route: 058
  2. HUMULIN 70/30 [Suspect]
     Active Substance: INSULIN HUMAN
     Dosage: 15 MG, UNKNOWN
     Route: 058

REACTIONS (5)
  - Poor peripheral circulation [Unknown]
  - Myocardial infarction [Not Recovered/Not Resolved]
  - Monoplegia [Not Recovered/Not Resolved]
  - Visual impairment [Unknown]
  - Expired product administered [Unknown]

NARRATIVE: CASE EVENT DATE: 201802
